FAERS Safety Report 14479636 (Version 2)
Quarter: 2018Q2

REPORT INFORMATION
  Report Type: Spontaneous
  Country: US (occurrence: US)
  Receive Date: 20180202
  Receipt Date: 20180406
  Transmission Date: 20180711
  Serious: No
  Sender: FDA-Public Use
  Company Number: US-ASTRAZENECA-2018SE13685

PATIENT
  Age: 15234 Day
  Sex: Female
  Weight: 90.7 kg

DRUGS (4)
  1. METFORMIN [Concomitant]
     Active Substance: METFORMIN HYDROCHLORIDE
     Indication: SUPPLEMENTATION THERAPY
     Route: 048
     Dates: start: 201703
  2. INSULIN [Concomitant]
     Active Substance: INSULIN NOS
  3. BYDUREON [Suspect]
     Active Substance: EXENATIDE
     Indication: GLUCOSE TOLERANCE IMPAIRED
     Route: 058
     Dates: start: 201707
  4. METFORMIN [Concomitant]
     Active Substance: METFORMIN HYDROCHLORIDE
     Indication: WEIGHT DECREASED
     Route: 048
     Dates: start: 201703

REACTIONS (4)
  - Injection site extravasation [Unknown]
  - Intentional product misuse [Unknown]
  - Injection site pain [Recovered/Resolved]
  - Device malfunction [Unknown]

NARRATIVE: CASE EVENT DATE: 20180130
